FAERS Safety Report 10508524 (Version 1)
Quarter: 2014Q4

REPORT INFORMATION
  Report Type: Spontaneous
  Country: JP (occurrence: JP)
  Receive Date: 20141009
  Receipt Date: 20141009
  Transmission Date: 20150528
  Serious: Yes (Other)
  Sender: FDA-Public Use
  Company Number: JP-GLAXOSMITHKLINE-A201411114

PATIENT
  Sex: Male

DRUGS (3)
  1. LAMOTRIGINE. [Suspect]
     Active Substance: LAMOTRIGINE
     Route: 048
  2. LAMOTRIGINE. [Suspect]
     Active Substance: LAMOTRIGINE
     Indication: BIPOLAR DISORDER
     Route: 048
     Dates: start: 2010
  3. LIMAS [Concomitant]
     Active Substance: LITHIUM CARBONATE
     Route: 048

REACTIONS (4)
  - Mental impairment [Unknown]
  - Dysarthria [Unknown]
  - Cognitive disorder [Unknown]
  - Dizziness [Unknown]
